FAERS Safety Report 15614587 (Version 1)
Quarter: 2018Q4

REPORT INFORMATION
  Report Type: Spontaneous
  Country: CA (occurrence: CA)
  Receive Date: 20181113
  Receipt Date: 20181113
  Transmission Date: 20190205
  Serious: Yes (Other)
  Sender: FDA-Public Use
  Company Number: CA-CELLTRION INC.-2018CA022732

PATIENT

DRUGS (7)
  1. INFLECTRA [Suspect]
     Active Substance: INFLIXIMAB-DYYB
     Dosage: 500 MG/Q(EVERY) 0, 2, 6 WEEKS, THEN EVERY  8WEEKS; INTRAVENOUS
     Route: 042
     Dates: start: 20180917
  2. METHOTREXATE. [Concomitant]
     Active Substance: METHOTREXATE
     Dosage: UNK
     Dates: start: 201805
  3. FOLIC ACID. [Concomitant]
     Active Substance: FOLIC ACID
     Dosage: UNK
  4. SULFASALAZINE. [Concomitant]
     Active Substance: SULFASALAZINE
     Dosage: UNK
  5. INFLECTRA [Suspect]
     Active Substance: INFLIXIMAB-DYYB
     Indication: CROHN^S DISEASE
     Dosage: 500 MG/Q(EVERY) 0, 2, 6 WEEKS, THEN EVERY  8WEEKS; INTRAVENOUS
     Route: 042
     Dates: start: 20180614
  6. ASPIRINE [Concomitant]
     Active Substance: ASPIRIN
     Dosage: UNK
  7. INFLECTRA [Suspect]
     Active Substance: INFLIXIMAB-DYYB
     Dosage: 500 MG/Q(EVERY) 0, 2, 6 WEEKS, THEN EVERY  8WEEKS; INTRAVENOUS
     Route: 042
     Dates: start: 20180723

REACTIONS (9)
  - Fistula discharge [Not Recovered/Not Resolved]
  - Tremor [Unknown]
  - Anorectal disorder [Not Recovered/Not Resolved]
  - Pain [Unknown]
  - X-ray abnormal [Unknown]
  - Haemorrhage [Not Recovered/Not Resolved]
  - Drug ineffective [Not Recovered/Not Resolved]
  - Bloody discharge [Unknown]
  - Blood pressure fluctuation [Unknown]

NARRATIVE: CASE EVENT DATE: 20180917
